FAERS Safety Report 8066813-2 (Version None)
Quarter: 2012Q1

REPORT INFORMATION
  Report Type: 
  Country: None (occurrence: None)
  Receive Date: 20120124
  Receipt Date: 20120116
  Transmission Date: 20120608
  Serious: Yes (Other)
  Sender: FDA-Public Use
  Company Number: PHHY2012AR003911

PATIENT
  Sex: Female

DRUGS (2)
  1. TRILEPTAL [Suspect]
  2. ANTIPSYCHOTICS [Concomitant]

REACTIONS (1)
  - ACUTE ABDOMEN [None]
